FAERS Safety Report 12547645 (Version 3)
Quarter: 2016Q3

REPORT INFORMATION
  Report Type: Report from Study
  Country: US (occurrence: US)
  Receive Date: 20160712
  Receipt Date: 20160722
  Transmission Date: 20161109
  Serious: No
  Sender: FDA-Public Use
  Company Number: US-AMGEN-USASL2016086553

PATIENT
  Age: 33 Year
  Sex: Female

DRUGS (2)
  1. ENBREL [Suspect]
     Active Substance: ETANERCEPT
     Indication: PSORIATIC ARTHROPATHY
     Dosage: UNK UNK, WEEKLY
     Route: 065
     Dates: start: 20160630, end: 2016
  2. ENBREL [Suspect]
     Active Substance: ETANERCEPT
     Indication: PSORIASIS

REACTIONS (5)
  - Mobility decreased [Unknown]
  - Injection site pain [Unknown]
  - Hyperhidrosis [Unknown]
  - Adverse drug reaction [Unknown]
  - Rash generalised [Unknown]

NARRATIVE: CASE EVENT DATE: 2016
